FAERS Safety Report 9002377 (Version 2)
Quarter: 2012Q4

REPORT INFORMATION
  Report Type: Spontaneous
  Country: US (occurrence: None)
  Receive Date: 20121120
  Receipt Date: 20121120
  Transmission Date: 20130627
  Serious: Yes (Death)
  Sender: FDA-Public Use
  Company Number: 31626

PATIENT
  Age: 45 Year
  Sex: Male
  Weight: 90.9 kg

DRUGS (16)
  1. GLASSIA [Suspect]
     Indication: ALPHA-1 ANTI-TRYPSIN DEFICIENCY
     Route: 042
     Dates: start: 20120516, end: 20121003
  2. FUROSEMIDE [Concomitant]
  3. HYDROMORPHONE [Concomitant]
  4. MULTIVITAMIN [Concomitant]
  5. NYSTATIN POWDER [Concomitant]
  6. SPIRONLACTONE [Concomitant]
  7. HYDROCORTISONE [Concomitant]
  8. PROPRANOLOL [Concomitant]
  9. RIFAXIMIN [Concomitant]
  10. MAGNESIUM OXIDE [Concomitant]
  11. SPIRIVA [Concomitant]
  12. PROAIR [Concomitant]
  13. CIPROFLOXACIN [Concomitant]
  14. FOLIC ACID [Concomitant]
  15. LACTULOSE [Concomitant]
  16. ADVAIR [Concomitant]

REACTIONS (2)
  - Hepatic failure [None]
  - Sepsis [None]
